FAERS Safety Report 9589499 (Version 1)
Quarter: 2013Q4

REPORT INFORMATION
  Report Type: Spontaneous
  Country: US (occurrence: US)
  Receive Date: 20131003
  Receipt Date: 20131003
  Transmission Date: 20140711
  Serious: No
  Sender: FDA-Public Use
  Company Number: US-AMGEN-USASP2012070862

PATIENT
  Age: 62 Year
  Sex: Male

DRUGS (8)
  1. ENBREL [Suspect]
     Indication: RHEUMATOID ARTHRITIS
     Dosage: 50 MG, QWK
     Route: 058
     Dates: start: 20110110
  2. PRISTIQ [Concomitant]
     Dosage: 100 MG, QD
     Route: 048
  3. FOLIC ACID [Concomitant]
     Dosage: 1 MG, QD
     Route: 048
  4. METHOTREXATE [Concomitant]
     Dosage: 2.5 MG, 8QW
  5. PREDNISONE [Concomitant]
     Dosage: 2.5 MG, QD
     Route: 048
  6. METFORMIN HCL [Concomitant]
     Dosage: 500 MG, BID
     Route: 048
  7. DICLOFENAC                         /00372302/ [Concomitant]
     Dosage: 75 MG, BID
     Route: 048
  8. HYDROMORPHONE [Concomitant]
     Dosage: 2 MG, PRN

REACTIONS (1)
  - Arthritis [Not Recovered/Not Resolved]
